FAERS Safety Report 15170997 (Version 1)
Quarter: 2018Q3

REPORT INFORMATION
  Report Type: Spontaneous
  Country: CA (occurrence: CA)
  Receive Date: 20180622
  Receipt Date: 20180622
  Transmission Date: 20181010
  Serious: Yes (Disabling, Other)
  Sender: FDA-Public Use
  Company Number: None

PATIENT
  Sex: Female
  Weight: 83.25 kg

DRUGS (8)
  1. AMLODIPINE [Concomitant]
     Active Substance: AMLODIPINE BESYLATE
  2. RANITIDINE. [Concomitant]
     Active Substance: RANITIDINE
  3. ASA [Concomitant]
     Active Substance: ASPIRIN
  4. PREGABALIN. [Concomitant]
     Active Substance: PREGABALIN
  5. CLONOZEPAM [Concomitant]
  6. METROPROLOT TART FILM [Concomitant]
  7. TEVA?HYDROCHLOROTHIAZIDE [Concomitant]
     Active Substance: HYDROCHLOROTHIAZIDE
  8. MIRAPEX [Suspect]
     Active Substance: PRAMIPEXOLE DIHYDROCHLORIDE
     Indication: RESTLESS LEGS SYNDROME
     Dosage: ?          QUANTITY:4 DF DOSAGE FORM;?
     Route: 048
     Dates: start: 20080603, end: 20180613

REACTIONS (4)
  - Upper-airway cough syndrome [None]
  - Musculoskeletal disorder [None]
  - Muscle twitching [None]
  - Vomiting [None]
